FAERS Safety Report 7752380-7 (Version None)
Quarter: 2011Q3

REPORT INFORMATION
  Report Type: 
  Country: None (occurrence: None)
  Receive Date: 20110913
  Receipt Date: 20110831
  Transmission Date: 20111222
  Serious: Yes (Other)
  Sender: FDA-Public Use
  Company Number: FK201101826

PATIENT
  Age: 65 Year
  Sex: Male

DRUGS (1)
  1. HEPARIN SODIUM [Suspect]
     Dosage: TARGET LEVELS: 1.5-2 TIMES NORMAL VALUE

REACTIONS (6)
  - NEUROLOGICAL DECOMPENSATION [None]
  - HAEMATOCRIT DECREASED [None]
  - MEAN CELL VOLUME DECREASED [None]
  - SUPERIOR SAGITTAL SINUS THROMBOSIS [None]
  - CEREBRAL HAEMORRHAGE [None]
  - STATUS EPILEPTICUS [None]
